FAERS Safety Report 9289988 (Version 1)
Quarter: 2013Q2

REPORT INFORMATION
  Report Type: Spontaneous
  Country: MY (occurrence: MY)
  Receive Date: 20130515
  Receipt Date: 20130515
  Transmission Date: 20140414
  Serious: Yes (Other)
  Sender: FDA-Public Use
  Company Number: MY-ACCORD-017635

PATIENT
  Age: 68 Year
  Sex: Female

DRUGS (5)
  1. GLYCERYL TRINITRATE [Concomitant]
  2. APO-CLOPIDOGREL [Suspect]
     Indication: ANGINA UNSTABLE
     Route: 048
  3. SIMVASTATIN [Concomitant]
  4. AMLODIPINE [Suspect]
     Indication: HYPERTENSION
     Route: 048
  5. ISOSORBIDE MONONITRATE [Concomitant]

REACTIONS (2)
  - Anaphylactic shock [Not Recovered/Not Resolved]
  - Urticaria [Not Recovered/Not Resolved]
